FAERS Safety Report 14326224 (Version 8)
Quarter: 2018Q2

REPORT INFORMATION
  Report Type: Report from Study
  Country: FR (occurrence: FR)
  Receive Date: 20171227
  Receipt Date: 20180427
  Transmission Date: 20180711
  Serious: Yes (Death, Hospitalization, Other)
  Sender: FDA-Public Use
  Company Number: PHHY2017FR194012

PATIENT
  Age: 69 Year
  Sex: Female
  Weight: 64 kg

DRUGS (1)
  1. VOTRIENT [Suspect]
     Active Substance: PAZOPANIB HYDROCHLORIDE
     Indication: RENAL CANCER METASTATIC
     Dosage: 800 MG, QD
     Route: 048
     Dates: start: 20171120, end: 20180119

REACTIONS (14)
  - Orbital oedema [Not Recovered/Not Resolved]
  - Asthenia [Unknown]
  - Dyspnoea [Fatal]
  - Cardiac failure acute [Unknown]
  - Oedema peripheral [Unknown]
  - Malignant neoplasm progression [Unknown]
  - Cough [Unknown]
  - Acne [Unknown]
  - Hypercholesterolaemia [Unknown]
  - Cardiac ventricular thrombosis [Unknown]
  - Ventricular hypokinesia [Unknown]
  - Renal cell carcinoma [Unknown]
  - Hypercalcaemia [Unknown]
  - Vomiting [Unknown]

NARRATIVE: CASE EVENT DATE: 20171201
